FAERS Safety Report 6706192-3 (Version None)
Quarter: 2010Q2

REPORT INFORMATION
  Report Type: 
  Country: None (occurrence: None)
  Receive Date: 20100503
  Receipt Date: 20100423
  Transmission Date: 20101027
  Serious: Yes (Other)
  Sender: FDA-Public Use
  Company Number: HQWYE734103AUG04

PATIENT
  Sex: Female

DRUGS (3)
  1. PREMARIN [Suspect]
     Indication: MENOPAUSE
     Dosage: UNKNOWN
     Route: 048
     Dates: end: 19990101
  2. MEDROXYPROGESTERONE ACETATE [Suspect]
  3. CONJUGATED ESTROGENS [Suspect]

REACTIONS (1)
  - BREAST CANCER METASTATIC [None]
